FAERS Safety Report 5235021-2 (Version None)
Quarter: 2007Q1

REPORT INFORMATION
  Report Type: 
  Country: None (occurrence: None)
  Receive Date: 20070207
  Receipt Date: 20070130
  Transmission Date: 20070707
  Serious: Yes (Hospitalization)
  Sender: FDA-Public Use
  Company Number: S07-USA-00484-01

PATIENT
  Age: 38 Year
  Sex: Male

DRUGS (2)
  1. LEXAPRO [Suspect]
     Indication: DEPRESSION
     Dosage: 10 MG QD PO
     Route: 048
     Dates: start: 20061228
  2. RISPERDAL [Concomitant]

REACTIONS (4)
  - CONFUSIONAL STATE [None]
  - CONVULSION [None]
  - HYPONATRAEMIA [None]
  - MOUTH HAEMORRHAGE [None]
